FAERS Safety Report 14821375 (Version 1)
Quarter: 2018Q2

REPORT INFORMATION
  Report Type: Spontaneous
  Country: US (occurrence: US)
  Receive Date: 20180427
  Receipt Date: 20180427
  Transmission Date: 20180711
  Serious: Yes (Disabling, Other)
  Sender: FDA-Public Use
  Company Number: US-REGENERON PHARMACEUTICALS, INC.-2018-21605

PATIENT

DRUGS (2)
  1. EYLEA [Suspect]
     Active Substance: AFLIBERCEPT
     Dosage: OD EVERY 5 WEEKS, LAST DOSE
     Route: 031
     Dates: start: 20180416, end: 20180416
  2. EYLEA [Suspect]
     Active Substance: AFLIBERCEPT
     Indication: NEOVASCULAR AGE-RELATED MACULAR DEGENERATION
     Dosage: OD EVERY 5 WEEKS
     Route: 031
     Dates: start: 20150813

REACTIONS (2)
  - Blindness unilateral [Unknown]
  - Eye inflammation [Unknown]

NARRATIVE: CASE EVENT DATE: 20180418
